FAERS Safety Report 10268641 (Version 2)
Quarter: 2014Q3

REPORT INFORMATION
  Report Type: Spontaneous
  Country: US (occurrence: None)
  Receive Date: 20140625
  Receipt Date: 20140709
  Transmission Date: 20150326
  Serious: Yes (Other)
  Sender: FDA-Public Use
  Company Number: UNT-2014-002460

PATIENT
  Age: 57 Year
  Sex: Female
  Weight: 52.1 kg

DRUGS (4)
  1. TYVASO [Suspect]
     Active Substance: TREPROSTINIL
     Indication: PULMONARY ARTERIAL HYPERTENSION
     Route: 055
     Dates: start: 20120509
  2. LETAIRIS [Concomitant]
     Active Substance: AMBRISENTAN
  3. TADALAFIL [Suspect]
     Active Substance: TADALAFIL
     Indication: PRODUCT USED FOR UNKNOWN INDICATION
  4. WARFARIN (WARFARIN SODIUM) [Concomitant]

REACTIONS (2)
  - Cough [None]
  - Neoplasm malignant [None]
